FAERS Safety Report 13855756 (Version 5)
Quarter: 2019Q1

REPORT INFORMATION
  Report Type: Spontaneous
  Country: US (occurrence: US)
  Receive Date: 20170810
  Receipt Date: 20190305
  Transmission Date: 20190417
  Serious: Yes (Hospitalization, Other)
  Sender: FDA-Public Use
  Company Number: US-PFIZER INC-2017343433

PATIENT
  Age: 47 Year
  Sex: Female

DRUGS (1)
  1. XELJANZ XR [Suspect]
     Active Substance: TOFACITINIB CITRATE
     Indication: RHEUMATOID ARTHRITIS
     Dosage: 11 MG, 1X/DAY
     Route: 048
     Dates: start: 201707

REACTIONS (6)
  - Periodontal disease [Not Recovered/Not Resolved]
  - Tooth abscess [Unknown]
  - Gingival disorder [Unknown]
  - Enteritis infectious [Unknown]
  - Influenza [Unknown]
  - Eating disorder [Unknown]
